FAERS Safety Report 8892939 (Version 1)
Quarter: 2012Q4

REPORT INFORMATION
  Report Type: 
  Country: US (occurrence: US)
  Receive Date: 20121107
  Receipt Date: 20121107
  Transmission Date: 20130627
  Serious: Yes (Hospitalization)
  Sender: FDA-Public Use
  Company Number: US-AMGEN-USASP2011056876

PATIENT
  Sex: Male

DRUGS (1)
  1. ENBREL [Suspect]
     Indication: PROSTATIC SPECIFIC ANTIGEN
     Dosage: 50 mg, qwk
     Dates: start: 201108, end: 201109

REACTIONS (2)
  - Kidney infection [Recovered/Resolved with Sequelae]
  - Kidney infection [Recovered/Resolved]
